FAERS Safety Report 9520918 (Version 4)
Quarter: 2013Q4

REPORT INFORMATION
  Report Type: Spontaneous
  Country: US (occurrence: US)
  Receive Date: 20130913
  Receipt Date: 20131021
  Transmission Date: 20140711
  Serious: No
  Sender: FDA-Public Use
  Company Number: US-PFIZER INC-2013246791

PATIENT
  Sex: Female

DRUGS (2)
  1. TOVIAZ [Suspect]
     Dosage: 8 MG, UNK
  2. CYMBALTA [Suspect]
     Dosage: 30 MG, UNK

REACTIONS (2)
  - Drug intolerance [Unknown]
  - Drug ineffective [Unknown]
